FAERS Safety Report 16435180 (Version 2)
Quarter: 2019Q2

REPORT INFORMATION
  Report Type: Spontaneous
  Country: AU (occurrence: AU)
  Receive Date: 20190614
  Receipt Date: 20190619
  Transmission Date: 20190711
  Serious: Yes (Death, Other)
  Sender: FDA-Public Use
  Company Number: AU-PFIZER INC-2019252482

PATIENT
  Age: 43 Year
  Sex: Male

DRUGS (14)
  1. TERBINAFINE. [Suspect]
     Active Substance: TERBINAFINE
     Indication: SCOPULARIOPSIS INFECTION
     Dosage: 250 MG, 2X/DAY
     Route: 048
  2. CASPOFUNGIN [Suspect]
     Active Substance: CASPOFUNGIN
     Indication: SCOPULARIOPSIS INFECTION
     Dosage: 50 MG, DAILY
     Route: 042
  3. TACROLIMUS. [Concomitant]
     Active Substance: TACROLIMUS
     Indication: ACUTE GRAFT VERSUS HOST DISEASE
  4. MYCOPHENOLATE [Concomitant]
     Active Substance: MYCOPHENOLIC ACID
     Indication: IMMUNOSUPPRESSANT DRUG THERAPY
     Dosage: UNK
  5. MYCOPHENOLATE [Concomitant]
     Active Substance: MYCOPHENOLIC ACID
     Indication: ACUTE GRAFT VERSUS HOST DISEASE
  6. VORICONAZOLE. [Suspect]
     Active Substance: VORICONAZOLE
     Indication: SCOPULARIOPSIS INFECTION
     Dosage: UNK
  7. POSACONAZOLE [Suspect]
     Active Substance: POSACONAZOLE
     Indication: SCOPULARIOPSIS INFECTION
     Dosage: 200 MG, 4X/DAY
     Route: 048
  8. VORICONAZOLE. [Suspect]
     Active Substance: VORICONAZOLE
     Dosage: (200 UG/0.1 ML) (INTRAVITREAL INJECTION)
  9. INFLIXIMAB [Concomitant]
     Active Substance: INFLIXIMAB
     Indication: IMMUNOSUPPRESSANT DRUG THERAPY
     Dosage: UNK
  10. INFLIXIMAB [Concomitant]
     Active Substance: INFLIXIMAB
     Indication: ACUTE GRAFT VERSUS HOST DISEASE
  11. PREDNISOLONE. [Suspect]
     Active Substance: PREDNISOLONE
     Indication: SCOPULARIOPSIS INFECTION
     Dosage: 75 MG, UNK
  12. PREDNISOLONE. [Suspect]
     Active Substance: PREDNISOLONE
     Dosage: 20 MG, UNK
  13. TACROLIMUS. [Concomitant]
     Active Substance: TACROLIMUS
     Indication: IMMUNOSUPPRESSANT DRUG THERAPY
     Dosage: UNK
  14. AMPHOTERICIN B. [Suspect]
     Active Substance: AMPHOTERICIN B
     Indication: SCOPULARIOPSIS INFECTION
     Dosage: UNK, (5 UG/0.1 ML) (INTRAVITREAL INJECTION)

REACTIONS (3)
  - Off label use [Fatal]
  - Drug ineffective for unapproved indication [Fatal]
  - Chorioretinitis [Fatal]
